FAERS Safety Report 22330013 (Version 1)
Quarter: 2023Q2

REPORT INFORMATION
  Report Type: Spontaneous
  Country: US (occurrence: None)
  Receive Date: 20230517
  Receipt Date: 20230517
  Transmission Date: 20230722
  Serious: No
  Sender: FDA-Public Use
  Company Number: US-ROCHE-3170482

PATIENT
  Sex: Female
  Weight: 62.652 kg

DRUGS (2)
  1. ACTEMRA [Suspect]
     Active Substance: TOCILIZUMAB
     Indication: Giant cell arteritis
     Route: 065
     Dates: start: 202207
  2. PROLIA [Concomitant]
     Active Substance: DENOSUMAB

REACTIONS (3)
  - Rhinorrhoea [Unknown]
  - Glaucoma [Unknown]
  - Sinus disorder [Unknown]
